FAERS Safety Report 20224372 (Version 1)
Quarter: 2021Q4

REPORT INFORMATION
  Report Type: Spontaneous
  Country: NZ (occurrence: NZ)
  Receive Date: 20211223
  Receipt Date: 20211223
  Transmission Date: 20220303
  Serious: Yes (Hospitalization)
  Sender: FDA-Public Use
  Company Number: NZ-TEVA-2021-NZ-1990833

PATIENT
  Age: 56 Year
  Sex: Male

DRUGS (1)
  1. EMTRICITABINE\TENOFOVIR [Suspect]
     Active Substance: EMTRICITABINE\TENOFOVIR
     Indication: Product used for unknown indication
     Dosage: 200MG/245MG
     Route: 048

REACTIONS (4)
  - Vomiting [Not Recovered/Not Resolved]
  - Nausea [Not Recovered/Not Resolved]
  - Dysphagia [Not Recovered/Not Resolved]
  - Product dose omission issue [Unknown]
